FAERS Safety Report 13022610 (Version 2)
Quarter: 2020Q2

REPORT INFORMATION
  Report Type: Spontaneous
  Country: US (occurrence: US)
  Receive Date: 20161213
  Receipt Date: 20200528
  Transmission Date: 20200713
  Serious: Yes (Other)
  Sender: FDA-Public Use
  Company Number: US-PFIZER INC-2016570887

PATIENT
  Age: 79 Year
  Sex: Female

DRUGS (1)
  1. DETROL LA [Suspect]
     Active Substance: TOLTERODINE TARTRATE
     Dosage: UNK

REACTIONS (3)
  - Lung neoplasm malignant [Unknown]
  - Nervousness [Unknown]
  - Confusional state [Unknown]
